FAERS Safety Report 12622087 (Version 1)
Quarter: 2016Q3

REPORT INFORMATION
  Report Type: Spontaneous
  Country: US (occurrence: US)
  Receive Date: 20160804
  Receipt Date: 20160804
  Transmission Date: 20161109
  Serious: No
  Sender: FDA-Public Use
  Company Number: US-ANACOR-2016ANA00168

PATIENT
  Sex: Male

DRUGS (1)
  1. KERYDIN [Suspect]
     Active Substance: TAVABOROLE
     Dosage: UNK

REACTIONS (2)
  - Erythema [Unknown]
  - Pruritus [Unknown]
